FAERS Safety Report 5897224-3 (Version None)
Quarter: 2008Q3

REPORT INFORMATION
  Report Type: 
  Country: None (occurrence: None)
  Receive Date: 20080923
  Receipt Date: 20080909
  Transmission Date: 20090109
  Serious: Yes (Congenital Anomaly)
  Sender: FDA-Public Use
  Company Number: B0537886A

PATIENT
  Sex: 0

DRUGS (4)
  1. CETIRIZINE HYDROCHLORIDE [Suspect]
     Indication: HYPERSENSITIVITY
     Dosage: TRANSPLACENTARY
     Route: 064
  2. LORATADINE [Suspect]
     Dosage: 100 MG, WEEIKLY, TRANSPLACENTARY
     Route: 064
  3. CROMOLYN SODIUM [Suspect]
     Indication: DRUG USE FOR UNKNOWN INDICATION
     Dosage: TRANSPLACENTARY
     Route: 064
  4. RANITIDINE HYDROCHLORIDE [Suspect]
     Indication: DRUG USE FOR UNKNOWN INDICATION
     Dosage: TRANSPLACENTARY
     Route: 064

REACTIONS (5)
  - CONGENITAL ANOMALY [None]
  - DRUG EXPOSURE DURING PREGNANCY [None]
  - HYDROCELE [None]
  - MATERNAL DRUGS AFFECTING FOETUS [None]
  - PREMATURE BABY [None]
